FAERS Safety Report 10561862 (Version 2)
Quarter: 2014Q4

REPORT INFORMATION
  Report Type: Spontaneous
  Country: US (occurrence: US)
  Receive Date: 20141104
  Receipt Date: 20141104
  Transmission Date: 20150529
  Serious: Yes (Other)
  Sender: FDA-Public Use
  Company Number: US-ROCHE-413900

PATIENT
  Age: 59 Year
  Sex: Female

DRUGS (3)
  1. ROXICET [Concomitant]
     Active Substance: ACETAMINOPHEN\OXYCODONE HYDROCHLORIDE
     Route: 065
  2. LORAZEPAM. [Concomitant]
     Active Substance: LORAZEPAM
     Route: 065
  3. AVASTIN [Suspect]
     Active Substance: BEVACIZUMAB
     Indication: METASTATIC RENAL CELL CARCINOMA
     Route: 042

REACTIONS (4)
  - Sepsis [Unknown]
  - Posterior reversible encephalopathy syndrome [Recovered/Resolved]
  - Haemorrhagic stroke [Unknown]
  - Generalised tonic-clonic seizure [Unknown]
